FAERS Safety Report 4306942-X (Version None)
Quarter: 2004Q1

REPORT INFORMATION
  Report Type: 
  Country: None (occurrence: None)
  Receive Date: 20040227
  Receipt Date: 20040218
  Transmission Date: 20041129
  Serious: Yes (Hospitalization, Disabling)
  Sender: FDA-Public Use
  Company Number: WAES 0402USA01381

PATIENT
  Age: 72 Year
  Sex: Male

DRUGS (9)
  1. VICODIN [Concomitant]
     Dates: start: 20040213
  2. LASIX [Concomitant]
  3. NEURONTIN [Concomitant]
  4. GLUCOSAMINE [Concomitant]
  5. KLOR-CON [Concomitant]
  6. VIOXX [Suspect]
     Indication: ROTATOR CUFF SYNDROME
     Route: 048
     Dates: start: 19990501, end: 20040113
  7. VIOXX [Suspect]
     Route: 048
     Dates: start: 20040213
  8. VIOXX [Suspect]
     Indication: OSTEOARTHRITIS
     Route: 048
     Dates: start: 19990501, end: 20040113
  9. VIOXX [Suspect]
     Route: 048
     Dates: start: 20040213

REACTIONS (3)
  - ACTIVITIES OF DAILY LIVING IMPAIRED [None]
  - OEDEMA PERIPHERAL [None]
  - PAIN IN EXTREMITY [None]
